FAERS Safety Report 6437448-X (Version None)
Quarter: 2009Q4

REPORT INFORMATION
  Report Type: 
  Country: None (occurrence: None)
  Receive Date: 20091112
  Receipt Date: 20091103
  Transmission Date: 20100525
  Serious: Yes (Other)
  Sender: FDA-Public Use
  Company Number: US-JNJCH-2009028987

PATIENT
  Age: 32 Year
  Sex: Female
  Weight: 81.6 kg

DRUGS (6)
  1. SUDAFED PE COLD + COUGH CAPLETS [Suspect]
     Indication: NASOPHARYNGITIS
     Dosage: TEXT:2 CAPLETS EVERY 4-6 HOURS
     Route: 048
     Dates: start: 20091011, end: 20091027
  2. SEROQUEL [Concomitant]
     Indication: BIPOLAR DISORDER
     Dosage: TEXT:400 MG ONCE AT NIGHT
     Route: 065
  3. PROZAC [Concomitant]
     Indication: ANXIETY
     Dosage: TEXT:20 MG ONCE DAILY
     Route: 065
  4. ATIVAN [Concomitant]
     Indication: PHOBIA
     Dosage: TEXT:4 MG THREE TIME DAILY
     Route: 065
  5. CLARITIN [Concomitant]
     Indication: HYPERSENSITIVITY
     Dosage: TEXT:10 MG ONCE DAILY
     Route: 065
  6. ALBUTEROL [Concomitant]
     Indication: ASTHMA
     Dosage: TEXT:2 PUFFS AS NEEDED
     Route: 065

REACTIONS (1)
  - DRUG WITHDRAWAL SYNDROME [None]
